FAERS Safety Report 15284304 (Version 1)
Quarter: 2018Q3

REPORT INFORMATION
  Report Type: Spontaneous
  Country: US (occurrence: US)
  Receive Date: 20180816
  Receipt Date: 20180816
  Transmission Date: 20181010
  Serious: No
  Sender: FDA-Public Use
  Company Number: US-TEVA-2018-US-941326

PATIENT
  Sex: Female

DRUGS (1)
  1. METRONIDAZOLE. [Suspect]
     Active Substance: METRONIDAZOLE
     Indication: VAGINAL INFECTION
     Dates: start: 20180806

REACTIONS (6)
  - Feeling hot [Unknown]
  - Vomiting [Recovered/Resolved]
  - Pruritus [Unknown]
  - Pruritus generalised [Unknown]
  - Paraesthesia oral [Unknown]
  - Throat irritation [Unknown]

NARRATIVE: CASE EVENT DATE: 20180806
